FAERS Safety Report 10024454 (Version 1)
Quarter: 2014Q1

REPORT INFORMATION
  Report Type: Spontaneous
  Country: GB (occurrence: GB)
  Receive Date: 20140320
  Receipt Date: 20140320
  Transmission Date: 20141002
  Serious: Yes (Other)
  Sender: FDA-Public Use
  Company Number: GB-MERCK-1403GBR005560

PATIENT
  Sex: Male

DRUGS (4)
  1. ZOCOR [Suspect]
     Dosage: UNK
     Route: 048
  2. NATRASLEEP [Interacting]
     Dosage: 2  TABLETS TUES, THURS AND BY FRIDAY
  3. PERINDOPRIL [Concomitant]
     Dosage: UNK
  4. ALLOPURINOL [Concomitant]
     Dosage: UNK

REACTIONS (4)
  - Renal failure [Unknown]
  - Drug interaction [Unknown]
  - Rhabdomyolysis [Unknown]
  - Hepatic failure [Unknown]
